FAERS Safety Report 4719602-8 (Version None)
Quarter: 2005Q3

REPORT INFORMATION
  Report Type: 
  Country: None (occurrence: None)
  Receive Date: 20050721
  Receipt Date: 20040413
  Transmission Date: 20060218
  Serious: Yes (Other)
  Sender: FDA-Public Use
  Company Number: US-GLAXOSMITHKLINE-A0508206A

PATIENT
  Sex: Female

DRUGS (8)
  1. AVANDIA [Suspect]
     Dosage: 4MG TWICE PER DAY
     Route: 048
     Dates: start: 20010205, end: 20021001
  2. PRILOSEC [Concomitant]
     Route: 048
  3. ACCUPRIL [Concomitant]
     Dosage: 10MG PER DAY
  4. GLUCOTROL [Concomitant]
     Dosage: 10MG PER DAY
  5. NORVASC [Concomitant]
     Dosage: 5MG PER DAY
     Route: 048
  6. ALLEGRA [Concomitant]
     Route: 048
  7. FLEXTRA DS [Concomitant]
  8. GLAUCOMA EYE DROPS (UNSPECIFIED) [Concomitant]
     Indication: GLAUCOMA
     Route: 047

REACTIONS (1)
  - CARDIAC FAILURE CONGESTIVE [None]
